FAERS Safety Report 9753898 (Version 3)
Quarter: 2015Q3

REPORT INFORMATION
  Report Type: Spontaneous
  Country: US (occurrence: US)
  Receive Date: 20131213
  Receipt Date: 20150805
  Transmission Date: 20151125
  Serious: No
  Sender: FDA-Public Use
  Company Number: US-GILEAD-2010-0027542

PATIENT
  Age: 55 Year
  Sex: Female
  Weight: 87.54 kg

DRUGS (25)
  1. REQUIP [Concomitant]
     Active Substance: ROPINIROLE HYDROCHLORIDE
  2. TOPIRAMATE. [Concomitant]
     Active Substance: TOPIRAMATE
  3. POTASSIUM CHLORIDE. [Concomitant]
     Active Substance: POTASSIUM CHLORIDE
  4. LUNESTA [Concomitant]
     Active Substance: ESZOPICLONE
  5. HUMALOG [Concomitant]
     Active Substance: INSULIN LISPRO
  6. LANTUS [Concomitant]
     Active Substance: INSULIN GLARGINE
  7. KLONOPIN [Concomitant]
     Active Substance: CLONAZEPAM
  8. ALDACTONE [Concomitant]
     Active Substance: SPIRONOLACTONE
  9. COUMADIN [Concomitant]
     Active Substance: WARFARIN SODIUM
  10. LEXAPRO [Concomitant]
     Active Substance: ESCITALOPRAM OXALATE
  11. DOXEPIN [Concomitant]
     Active Substance: DOXEPIN
  12. LEVODOPA/CARBIDOPA [Concomitant]
  13. VITAMIN D [Concomitant]
     Active Substance: CHOLECALCIFEROL
  14. LETAIRIS [Suspect]
     Active Substance: AMBRISENTAN
     Indication: PULMONARY ARTERIAL HYPERTENSION
     Route: 048
     Dates: start: 20091230
  15. LASIX [Concomitant]
     Active Substance: FUROSEMIDE
  16. ALBUTEROL. [Concomitant]
     Active Substance: ALBUTEROL
  17. SYNTHROID [Concomitant]
     Active Substance: LEVOTHYROXINE SODIUM
  18. PRINIVIL [Concomitant]
     Active Substance: LISINOPRIL
  19. LIPITOR [Concomitant]
     Active Substance: ATORVASTATIN CALCIUM
  20. ZITHROMAX [Concomitant]
     Active Substance: AZITHROMYCIN DIHYDRATE
  21. TIKOSYN [Concomitant]
     Active Substance: DOFETILIDE
  22. PROTONIX [Concomitant]
     Active Substance: PANTOPRAZOLE SODIUM
  23. DILTIAZEM [Concomitant]
     Active Substance: DILTIAZEM
  24. CARAFATE [Concomitant]
     Active Substance: SUCRALFATE
  25. PARACETAMOL/HYDROCODONE BITARTRATE [Concomitant]

REACTIONS (4)
  - Epistaxis [Unknown]
  - Nasal congestion [Unknown]
  - Dyspnoea [Unknown]
  - Nasal dryness [Unknown]
